FAERS Safety Report 9373463 (Version 2)
Quarter: 2013Q3

REPORT INFORMATION
  Report Type: Report from Study
  Country: DE (occurrence: DE)
  Receive Date: 20130627
  Receipt Date: 20130822
  Transmission Date: 20140515
  Serious: Yes (Other)
  Sender: FDA-Public Use
  Company Number: DE-UCBSA-045891

PATIENT
  Sex: Male
  Weight: 83 kg

DRUGS (9)
  1. CERTOLIZUMAB PEGOL [Suspect]
     Indication: RHEUMATOID ARTHRITIS
     Route: 058
     Dates: start: 20110214, end: 20110414
  2. CERTOLIZUMAB PEGOL [Suspect]
     Indication: RHEUMATOID ARTHRITIS
     Dosage: DOSE: 200 MG
     Route: 058
     Dates: start: 20110526
  3. METOPROLOL [Concomitant]
     Indication: HYPERTENSION
     Dates: start: 2001
  4. NOVODIGAL [Concomitant]
     Indication: HYPERTENSION
     Dates: start: 2001
  5. FLUVOXAMINE [Concomitant]
     Indication: ANXIETY DISORDER
     Dates: start: 2001
  6. METFORMIN [Concomitant]
     Indication: TYPE 2 DIABETES MELLITUS
     Dates: start: 20110510
  7. PANTOZOL [Concomitant]
     Indication: PROPHYLAXIS AGAINST GASTROINTESTINAL ULCER
     Dates: start: 20110426
  8. MARCUMAR [Concomitant]
     Indication: ATRIAL FIBRILLATION
     Dates: end: 201104
  9. MARCUMAR [Concomitant]
     Indication: ATRIAL FIBRILLATION
     Dates: start: 201105

REACTIONS (1)
  - Type 2 diabetes mellitus [Not Recovered/Not Resolved]
